FAERS Safety Report 5003760-4 (Version None)
Quarter: 2006Q2

REPORT INFORMATION
  Report Type: 
  Country: None (occurrence: None)
  Receive Date: 20060516
  Receipt Date: 20050414
  Transmission Date: 20061013
  Serious: Yes (Hospitalization, Other)
  Sender: FDA-Public Use
  Company Number: US-MERCK-0504USA02550

PATIENT
  Age: 59 Year
  Sex: Female
  Weight: 80 kg

DRUGS (3)
  1. VIOXX [Suspect]
     Indication: ARTHRITIS
     Route: 048
     Dates: start: 19990101, end: 20000101
  2. ESTRADIOL [Concomitant]
     Route: 048
  3. ATENOLOL [Concomitant]
     Route: 065

REACTIONS (7)
  - ACCIDENT [None]
  - BACK INJURY [None]
  - CORONARY ARTERY DISEASE [None]
  - JOINT INJURY [None]
  - MYOCARDIAL INFARCTION [None]
  - OVERDOSE [None]
  - PALPITATIONS [None]
